FAERS Safety Report 4939274-7 (Version None)
Quarter: 2006Q1

REPORT INFORMATION
  Report Type: 
  Country: None (occurrence: None)
  Receive Date: 20060306
  Receipt Date: 20060221
  Transmission Date: 20060701
  Serious: Yes (Hospitalization)
  Sender: FDA-Public Use
  Company Number: 2006021725

PATIENT
  Age: 76 Year
  Sex: Female
  Weight: 78 kg

DRUGS (2)
  1. ZOLOFT [Suspect]
     Indication: SEASONAL AFFECTIVE DISORDER
     Dosage: 50 MG (ORAL)
     Dates: start: 20030801
  2. ENALAPRIL MALEATE [Concomitant]

REACTIONS (4)
  - FALL [None]
  - PNEUMONIA [None]
  - SECONDARY HYPOTHYROIDISM [None]
  - SYNCOPE [None]
